FAERS Safety Report 7310765-7 (Version None)
Quarter: 2011Q1

REPORT INFORMATION
  Report Type: 
  Country: None (occurrence: None)
  Receive Date: 20110224
  Receipt Date: 20110218
  Transmission Date: 20110831
  Serious: Yes (Hospitalization)
  Sender: FDA-Public Use
  Company Number: NL-MEDIMMUNE-MEDI-0010479

PATIENT
  Sex: Female

DRUGS (1)
  1. SYNAGIS [Suspect]
     Route: 030
     Dates: start: 20090916, end: 20100105

REACTIONS (5)
  - RHINORRHOEA [None]
  - OTITIS MEDIA [None]
  - RESPIRATORY DISORDER [None]
  - COUGH [None]
  - VIRAL INFECTION [None]
